FAERS Safety Report 21178146 (Version 1)
Quarter: 2022Q3

REPORT INFORMATION
  Report Type: Spontaneous
  Country: None (occurrence: DE)
  Receive Date: 20220805
  Receipt Date: 20220805
  Transmission Date: 20221026
  Serious: Yes (Other)
  Sender: FDA-Public Use
  Company Number: DE-HILL DERMACEUTICALS, INC.-2131548

PATIENT
  Sex: Female

DRUGS (1)
  1. TOLAK [Suspect]
     Active Substance: FLUOROURACIL
     Route: 061

REACTIONS (1)
  - Tonsillitis [Unknown]
